FAERS Safety Report 23567013 (Version 1)
Quarter: 2024Q1

REPORT INFORMATION
  Report Type: Spontaneous
  Country: FR (occurrence: FR)
  Receive Date: 20240226
  Receipt Date: 20240226
  Transmission Date: 20240410
  Serious: Yes (Hospitalization)
  Sender: FDA-Public Use
  Company Number: FR-PFIZER INC-202400048476

PATIENT
  Age: 81 Year
  Sex: Female

DRUGS (1)
  1. LORLATINIB [Suspect]
     Active Substance: LORLATINIB
     Indication: Lung neoplasm malignant
     Dosage: 75 MG, DAILY
     Dates: start: 20240212

REACTIONS (2)
  - Vertigo [Unknown]
  - Tinnitus [Unknown]

NARRATIVE: CASE EVENT DATE: 20240219
